FAERS Safety Report 16210056 (Version 3)
Quarter: 2021Q1

REPORT INFORMATION
  Report Type: Report from Study
  Country: US (occurrence: US)
  Receive Date: 20190417
  Receipt Date: 20210105
  Transmission Date: 20210419
  Serious: Yes (Other)
  Sender: FDA-Public Use
  Company Number: PHEH2019US016210

PATIENT
  Sex: Male

DRUGS (1)
  1. ENTRESTO [Suspect]
     Active Substance: SACUBITRIL\VALSARTAN
     Indication: PRODUCT USED FOR UNKNOWN INDICATION
     Dosage: UNK
     Route: 065

REACTIONS (9)
  - Feeling abnormal [Unknown]
  - Fluid retention [Unknown]
  - Cardiac disorder [Unknown]
  - Ejection fraction decreased [Unknown]
  - Cardiac failure congestive [Unknown]
  - Product availability issue [Unknown]
  - Nervousness [Unknown]
  - Dyspnoea [Unknown]
  - Nausea [Unknown]
